FAERS Safety Report 7141445-9 (Version None)
Quarter: 2010Q4

REPORT INFORMATION
  Report Type: 
  Country: None (occurrence: None)
  Receive Date: 20101207
  Receipt Date: 20101125
  Transmission Date: 20110411
  Serious: Yes (Other)
  Sender: FDA-Public Use
  Company Number: SE-SANOFI-AVENTIS-2010SA071789

PATIENT
  Age: 74 Year
  Sex: Female

DRUGS (8)
  1. MULTAQ [Suspect]
     Indication: ARRHYTHMIA
     Route: 048
     Dates: start: 20101010, end: 20101102
  2. WARAN [Concomitant]
  3. CAPTOPRIL [Concomitant]
  4. FELODIPINE [Concomitant]
  5. LEVOTHYROXINE SODIUM [Concomitant]
  6. SIMVASTATIN [Concomitant]
  7. BISOPROLOL [Concomitant]
     Route: 048
     Dates: start: 20101012, end: 20101101
  8. BISOPROLOL [Concomitant]
     Route: 048
     Dates: end: 20101011

REACTIONS (2)
  - ATRIAL FIBRILLATION [None]
  - ELECTROCARDIOGRAM QT PROLONGED [None]
